FAERS Safety Report 10802110 (Version 3)
Quarter: 2015Q1

REPORT INFORMATION
  Report Type: Spontaneous
  Country: JP (occurrence: JP)
  Receive Date: 20150217
  Receipt Date: 20150302
  Transmission Date: 20150721
  Serious: Yes (Hospitalization, Other)
  Sender: FDA-Public Use
  Company Number: JP-PFIZER INC-2015047131

PATIENT
  Age: 66 Year
  Sex: Male

DRUGS (1)
  1. BENEFIX [Suspect]
     Active Substance: COAGULATION FACTOR IX RECOMBINANT HUMAN\ISOPROPYL ALCOHOL
     Indication: FACTOR IX DEFICIENCY
     Dosage: 2000 IU, AS NEEDED
     Route: 042
     Dates: start: 201501

REACTIONS (4)
  - Fall [Unknown]
  - Limb injury [Unknown]
  - Haemorrhage [Recovered/Resolved]
  - Activated partial thromboplastin time abnormal [Unknown]

NARRATIVE: CASE EVENT DATE: 20150203
